FAERS Safety Report 11283700 (Version 2)
Quarter: 2015Q3

REPORT INFORMATION
  Report Type: Spontaneous
  Country: EG (occurrence: EG)
  Receive Date: 20150720
  Receipt Date: 20150730
  Transmission Date: 20151125
  Serious: Yes (Hospitalization)
  Sender: FDA-Public Use
  Company Number: EG-NOVOPROD-455917

PATIENT
  Age: 54 Year
  Sex: Female
  Weight: 91 kg

DRUGS (9)
  1. MIXTARD HUMAN 70/30 [Suspect]
     Active Substance: INSULIN HUMAN
     Indication: TYPE 2 DIABETES MELLITUS
     Dosage: 40 IU, SINGLE (AT DAYTIME)
     Route: 058
     Dates: start: 2009, end: 2014
  2. LANTUS [Concomitant]
     Active Substance: INSULIN GLARGINE
     Indication: TYPE 2 DIABETES MELLITUS
     Dosage: 45 IU, SINGLE (AT NIGHT)
     Route: 065
     Dates: start: 2009
  3. EMOX [Concomitant]
     Indication: CARDIAC DISORDER
     Dosage: QD
     Route: 065
  4. ASPOCID [Concomitant]
     Indication: CARDIAC DISORDER
     Dosage: 2 TAB, QD
     Route: 065
  5. CLUVAX                             /00166003/ [Concomitant]
     Dosage: QD
     Route: 065
  6. PLAVIX [Concomitant]
     Active Substance: CLOPIDOGREL BISULFATE
     Dosage: UNK
     Route: 065
     Dates: start: 2014, end: 2014
  7. CONCOR [Concomitant]
     Active Substance: BISOPROLOL FUMARATE
     Indication: HYPERTENSION
     Dosage: 2.5 MG
     Route: 065
  8. PLAVIX [Concomitant]
     Active Substance: CLOPIDOGREL BISULFATE
     Dosage: QD, FOR 1 YEAR
     Route: 065
     Dates: start: 2009, end: 2010
  9. PLAVIX [Concomitant]
     Active Substance: CLOPIDOGREL BISULFATE
     Indication: ANGINA PECTORIS
     Dosage: ONCE DAILY
     Route: 065
     Dates: start: 2007, end: 2008

REACTIONS (2)
  - Hypertension [Not Recovered/Not Resolved]
  - Hyperglycaemia [Not Recovered/Not Resolved]
